FAERS Safety Report 8931833 (Version 2)
Quarter: 2013Q1

REPORT INFORMATION
  Report Type: Report from Study
  Country: PL (occurrence: PL)
  Receive Date: 20121128
  Receipt Date: 20130109
  Transmission Date: 20140127
  Serious: Yes (Life-Threatening, Hospitalization, Disabling, Other)
  Sender: FDA-Public Use
  Company Number: PL-ROCHE-1157237

PATIENT
  Sex: Female
  Weight: 64 kg

DRUGS (5)
  1. PEG-INTERFERON ALFA 2A [Suspect]
     Indication: HEPATITIS C
     Route: 058
     Dates: start: 200709, end: 200808
  2. RIBAVIRIN [Suspect]
     Indication: HEPATITIS C
     Route: 065
  3. RIBAVIRIN [Suspect]
     Dosage: FRON WEEK 20 TO WEEK 48
     Route: 065
  4. EPOETIN BETA [Suspect]
     Indication: ANAEMIA
     Route: 065
  5. EUTHYROX [Concomitant]

REACTIONS (9)
  - Type 2 diabetes mellitus [Not Recovered/Not Resolved]
  - Anaemia [Recovered/Resolved]
  - Weight decreased [Unknown]
  - Polydipsia [Unknown]
  - Polyuria [Unknown]
  - Skin discolouration [Unknown]
  - Oral lichen planus [Unknown]
  - Hepatocellular carcinoma [Unknown]
  - Asthenia [Unknown]
